FAERS Safety Report 6705831-0 (Version None)
Quarter: 2010Q2

REPORT INFORMATION
  Report Type: 
  Country: None (occurrence: None)
  Receive Date: 20100503
  Receipt Date: 20080807
  Transmission Date: 20101027
  Serious: Yes (Other)
  Sender: FDA-Public Use
  Company Number: DE-BAYER-200820809GPV

PATIENT
  Age: 43 Year
  Sex: Female

DRUGS (3)
  1. NEXAVAR [Suspect]
     Indication: DRUG USE FOR UNKNOWN INDICATION
     Route: 048
  2. OMEPRAZOLE [Concomitant]
     Indication: DRUG USE FOR UNKNOWN INDICATION
     Route: 065
  3. TRIAMGALEN [Concomitant]
     Indication: ECZEMA
     Route: 065

REACTIONS (3)
  - HEADACHE [None]
  - PAIN OF SKIN [None]
  - VISUAL FIELD DEFECT [None]
